FAERS Safety Report 22621756 (Version 1)
Quarter: 2023Q2

REPORT INFORMATION
  Report Type: Spontaneous
  Country: JP (occurrence: JP)
  Receive Date: 20230620
  Receipt Date: 20230620
  Transmission Date: 20230721
  Serious: Yes (Other)
  Sender: FDA-Public Use
  Company Number: JP-ELI_LILLY_AND_COMPANY-JP202306008780

PATIENT
  Age: 65 Year

DRUGS (2)
  1. CYRAMZA [Suspect]
     Active Substance: RAMUCIRUMAB
     Indication: Lung neoplasm malignant
     Route: 041
  2. ERLOTINIB HYDROCHLORIDE [Suspect]
     Active Substance: ERLOTINIB HYDROCHLORIDE
     Indication: Lung neoplasm malignant
     Route: 065

REACTIONS (1)
  - Jaundice [Recovered/Resolved]
